FAERS Safety Report 7070339-2 (Version None)
Quarter: 2010Q4

REPORT INFORMATION
  Report Type: 
  Country: None (occurrence: None)
  Receive Date: 20101028
  Receipt Date: 20101025
  Transmission Date: 20110411
  Serious: No
  Sender: FDA-Public Use
  Company Number: US-WYE-H18305410

PATIENT
  Age: 56 Year
  Sex: Male

DRUGS (5)
  1. PROTONIX [Suspect]
     Indication: GASTROOESOPHAGEAL REFLUX DISEASE
     Route: 048
     Dates: start: 20100901
  2. COUMADIN [Suspect]
     Indication: DEEP VEIN THROMBOSIS
     Dosage: UNSPECIFIED DOSE, ONCE DAILY
  3. COUMADIN [Suspect]
     Indication: PULMONARY EMBOLISM
  4. MULTI-VITAMINS [Concomitant]
  5. LEXAPRO [Suspect]
     Indication: DEPRESSION
     Route: 048
     Dates: start: 20100901

REACTIONS (1)
  - RASH [None]
